FAERS Safety Report 24149872 (Version 6)
Quarter: 2024Q3

REPORT INFORMATION
  Report Type: Other
  Country: US (occurrence: US)
  Receive Date: 20240730
  Receipt Date: 20240917
  Transmission Date: 20241017
  Serious: No
  Sender: TRAVERE THERAPEUTICS
  Company Number: US-TRAVERE-2024TVT00593

PATIENT
  Age: 64 Year
  Sex: Female

DRUGS (1)
  1. FILSPARI [Suspect]
     Active Substance: SPARSENTAN
     Indication: IgA nephropathy
     Dosage: NDC NUMBER: 68974040030?RX NUMBER: 78599395/68974040030
     Route: 048
     Dates: start: 202405

REACTIONS (8)
  - Nausea [None]
  - Dizziness [None]
  - Abdominal discomfort [Unknown]
  - Limb discomfort [Unknown]
  - Dyspnoea [Unknown]
  - Vision blurred [Unknown]
  - Sinus disorder [Unknown]
  - Abdominal pain upper [None]

NARRATIVE: CASE EVENT DATE: 20240501
